FAERS Safety Report 14823172 (Version 7)
Quarter: 2018Q2

REPORT INFORMATION
  Report Type: Spontaneous
  Country: US (occurrence: US)
  Receive Date: 20180427
  Receipt Date: 20180628
  Transmission Date: 20180711
  Serious: Yes (Hospitalization)
  Sender: FDA-Public Use
  Company Number: US-ACTELION-A-NJ2018-171361

PATIENT
  Age: 58 Year
  Sex: Female
  Weight: 87.53 kg

DRUGS (5)
  1. VELETRI [Suspect]
     Active Substance: EPOPROSTENOL
     Dosage: 14 NG/KG, PER MIN
     Route: 042
     Dates: start: 20180526
  2. VELETRI [Suspect]
     Active Substance: EPOPROSTENOL
     Dosage: 6 NG/KG, PER MIN
     Route: 042
  3. VELETRI [Suspect]
     Active Substance: EPOPROSTENOL
     Indication: PULMONARY ARTERIAL HYPERTENSION
     Dosage: 17 NG/KG, PER MIN
     Route: 042
  4. VELETRI [Suspect]
     Active Substance: EPOPROSTENOL
     Dosage: 11 NG/KG, UNK
     Route: 042
  5. OXYGEN. [Concomitant]
     Active Substance: OXYGEN

REACTIONS (13)
  - Pain in extremity [Unknown]
  - Nausea [Unknown]
  - Oxygen consumption increased [Recovering/Resolving]
  - Pain in jaw [Unknown]
  - Pain [Unknown]
  - Flushing [Unknown]
  - Infusion site erythema [Unknown]
  - Catheter site erythema [Unknown]
  - Malaise [Recovering/Resolving]
  - Muscle spasms [Unknown]
  - Myalgia [Not Recovered/Not Resolved]
  - Fluid retention [Unknown]
  - Headache [Recovered/Resolved]

NARRATIVE: CASE EVENT DATE: 20180526
